FAERS Safety Report 14795068 (Version 1)
Quarter: 2018Q2

REPORT INFORMATION
  Report Type: Spontaneous
  Country: NL (occurrence: NL)
  Receive Date: 20180423
  Receipt Date: 20180423
  Transmission Date: 20180711
  Serious: Yes (Hospitalization)
  Sender: FDA-Public Use
  Company Number: NL-MYLANLABS-2018M1025916

PATIENT
  Age: 48 Year
  Sex: Female
  Weight: 57 kg

DRUGS (1)
  1. NITROFURANTOIN. [Suspect]
     Active Substance: NITROFURANTOIN
     Indication: URINARY TRACT INFECTION
     Dosage: 50 MG, UNK

REACTIONS (7)
  - Diaphragmalgia [Recovering/Resolving]
  - Palpitations [Recovering/Resolving]
  - Rash papular [Recovering/Resolving]
  - Headache [Recovered/Resolved]
  - Dyspnoea [Recovered/Resolved]
  - Respiratory rate increased [Recovering/Resolving]
  - Cough [Recovered/Resolved]

NARRATIVE: CASE EVENT DATE: 201710
